FAERS Safety Report 6242956-0 (Version None)
Quarter: 2009Q2

REPORT INFORMATION
  Report Type: 
  Country: None (occurrence: None)
  Receive Date: 20090624
  Receipt Date: 20080328
  Transmission Date: 20091009
  Serious: Yes (Death)
  Sender: FDA-Public Use
  Company Number: EC-PFIZER INC-2009229922

PATIENT
  Age: 93 Year

DRUGS (1)
  1. AMLODIPINE BESYLATE [Suspect]

REACTIONS (1)
  - DEATH [None]
